FAERS Safety Report 18576346 (Version 4)
Quarter: 2023Q1

REPORT INFORMATION
  Report Type: Report from Study
  Country: US (occurrence: US)
  Receive Date: 20201203
  Receipt Date: 20230223
  Transmission Date: 20230418
  Serious: Yes (Hospitalization)
  Sender: FDA-Public Use
  Company Number: US-GILEAD-2020-0506580

PATIENT
  Age: 67 Year
  Sex: Female
  Weight: 64 kg

DRUGS (85)
  1. AXICABTAGENE CILOLEUCEL [Suspect]
     Active Substance: AXICABTAGENE CILOLEUCEL
     Indication: B-cell lymphoma refractory
     Dosage: ^68^, AS PER PROTOCOL
     Route: 042
     Dates: start: 20201124, end: 20201124
  2. CYCLOPHOSPHAMIDE [Suspect]
     Active Substance: CYCLOPHOSPHAMIDE
     Indication: Bone marrow conditioning regimen
     Dosage: ^846^
     Route: 042
     Dates: start: 20201119, end: 20201121
  3. FLUDARABINE [Suspect]
     Active Substance: FLUDARABINE PHOSPHATE
     Indication: Bone marrow conditioning regimen
     Dosage: ^30^
     Route: 042
     Dates: start: 20201119, end: 20201121
  4. RITUXIMAB [Suspect]
     Active Substance: RITUXIMAB
     Indication: B-cell lymphoma refractory
     Dosage: ^633.75^
     Route: 042
     Dates: start: 20201119, end: 20201119
  5. RITUXIMAB [Suspect]
     Active Substance: RITUXIMAB
     Dosage: ^633.75^
     Route: 042
     Dates: start: 20201216, end: 20201216
  6. ANTICOAGULANT CITRATE DEXTROSE SOLUTION USP (ACD) FORMULA A [Concomitant]
     Dosage: 200,OTHER,ONCE
     Route: 042
     Dates: start: 20201106, end: 20201106
  7. HUMAN RED BLOOD CELL [Concomitant]
     Active Substance: HUMAN RED BLOOD CELL
     Dosage: 286,ML,ONCE
     Route: 042
     Dates: start: 20201127, end: 20201127
  8. ZOFRAN [Concomitant]
     Active Substance: ONDANSETRON HYDROCHLORIDE
     Dosage: 16,MG,DAILY
     Route: 042
     Dates: start: 20201119, end: 20201121
  9. TYLENOL [Concomitant]
     Active Substance: ACETAMINOPHEN
     Dosage: 650,MG,ONCE
     Route: 048
     Dates: start: 20201119, end: 20201119
  10. TYLENOL [Concomitant]
     Active Substance: ACETAMINOPHEN
     Dosage: 650,MG,AS NECESSARY
     Route: 048
     Dates: start: 20201123, end: 20201214
  11. TYLENOL [Concomitant]
     Active Substance: ACETAMINOPHEN
     Dosage: 650,MG,ONCE
     Route: 048
     Dates: start: 20201124, end: 20201124
  12. TYLENOL [Concomitant]
     Active Substance: ACETAMINOPHEN
     Dosage: 650,MG,ONCE
     Route: 048
     Dates: start: 20201216, end: 20201216
  13. EMEND (FOSAPREPITANT DIMEGLUMINE) [Concomitant]
     Active Substance: FOSAPREPITANT DIMEGLUMINE
     Dosage: 150,MG,ONCE
     Route: 042
     Dates: start: 20201119, end: 20201119
  14. SODIUM CHLORIDE [Concomitant]
     Active Substance: SODIUM CHLORIDE
     Dosage: 1000,ML,ONCE
     Route: 040
     Dates: start: 20201121, end: 20201121
  15. SODIUM CHLORIDE [Concomitant]
     Active Substance: SODIUM CHLORIDE
     Dosage: 1000,ML,ONCE
     Route: 040
     Dates: start: 20201126, end: 20201126
  16. SODIUM CHLORIDE [Concomitant]
     Active Substance: SODIUM CHLORIDE
     Dosage: 1000,ML,ONCE
     Route: 040
     Dates: start: 20201127, end: 20201127
  17. SODIUM CHLORIDE [Concomitant]
     Active Substance: SODIUM CHLORIDE
     Dosage: 1000,ML,ONCE
     Route: 040
     Dates: start: 20201130, end: 20201130
  18. SODIUM CHLORIDE [Concomitant]
     Active Substance: SODIUM CHLORIDE
     Dosage: 500,ML,ONCE
     Route: 040
     Dates: start: 20201210, end: 20201210
  19. SODIUM CHLORIDE [Concomitant]
     Active Substance: SODIUM CHLORIDE
     Dosage: 500,ML,ONCE
     Route: 040
     Dates: start: 20201212, end: 20201212
  20. SODIUM CHLORIDE [Concomitant]
     Active Substance: SODIUM CHLORIDE
     Dosage: 500,ML,ONCE
     Route: 040
     Dates: start: 20201215, end: 20201215
  21. SODIUM CHLORIDE [Concomitant]
     Active Substance: SODIUM CHLORIDE
     Dosage: 150,OTHER,CONTINUOUS
     Route: 042
     Dates: start: 20201119, end: 20201119
  22. SODIUM CHLORIDE [Concomitant]
     Active Substance: SODIUM CHLORIDE
     Dosage: 150,OTHER,CONTINUOUS
     Route: 042
     Dates: start: 20201119, end: 20201119
  23. POTASSIUM CHLORIDE [Concomitant]
     Active Substance: POTASSIUM CHLORIDE
     Dosage: 20-40,OTHER,AS NECESSARY
     Route: 048
     Dates: start: 20201121, end: 20201121
  24. POTASSIUM CHLORIDE [Concomitant]
     Active Substance: POTASSIUM CHLORIDE
     Dosage: 10-60,OTHER,AS NECESSARY
     Route: 048
     Dates: start: 20201123, end: 20201214
  25. POTASSIUM CHLORIDE [Concomitant]
     Active Substance: POTASSIUM CHLORIDE
     Dosage: 20,OTHER,AS NECESSARY
     Route: 042
     Dates: start: 20201123, end: 20201214
  26. POTASSIUM CHLORIDE [Concomitant]
     Active Substance: POTASSIUM CHLORIDE
     Dosage: 10,OTHER,AS NECESSARY
     Route: 042
     Dates: start: 20201123, end: 20201214
  27. POTASSIUM CHLORIDE [Concomitant]
     Active Substance: POTASSIUM CHLORIDE
     Dosage: 10-60,OTHER,AS NECESSARY
     Route: 042
     Dates: start: 20201123, end: 20201214
  28. ZYLOPRIM [Concomitant]
     Active Substance: ALLOPURINOL
     Dosage: 300,MG,ONCE
     Route: 048
     Dates: start: 20201121, end: 20201121
  29. ZYLOPRIM [Concomitant]
     Active Substance: ALLOPURINOL
     Dosage: 300,MG,DAILY
     Route: 048
     Dates: start: 20201123, end: 20201123
  30. ZOVIRAX [Concomitant]
     Active Substance: ACYCLOVIR
     Dosage: 800,MG,TWICE DAILY
     Route: 048
     Dates: start: 20201123, end: 20201130
  31. ZOVIRAX [Concomitant]
     Active Substance: ACYCLOVIR
     Dosage: 425,MG,TWICE DAILY
     Route: 042
     Dates: start: 20201130, end: 20201208
  32. ZOVIRAX [Concomitant]
     Active Substance: ACYCLOVIR
     Dosage: 800,MG,TWICE DAILY
     Route: 048
     Dates: start: 20201208, end: 20201214
  33. VALIUM [Concomitant]
     Active Substance: DIAZEPAM
     Dosage: 10,MG,TWICE DAILY
     Route: 048
     Dates: start: 20201123, end: 20201130
  34. VALIUM [Concomitant]
     Active Substance: DIAZEPAM
     Dosage: 10,MG,TWICE DAILY
     Route: 048
     Dates: start: 20201208, end: 20201214
  35. PEPCID [Concomitant]
     Active Substance: FAMOTIDINE
     Dosage: 20,MG,TWICE DAILY
     Route: 048
     Dates: start: 20201123, end: 20201130
  36. PEPCID [Concomitant]
     Active Substance: FAMOTIDINE
     Dosage: 20,MG,TWICE DAILY
     Route: 042
     Dates: start: 20201130, end: 20201208
  37. PEPCID [Concomitant]
     Active Substance: FAMOTIDINE
     Dosage: 20,MG,TWICE DAILY
     Route: 048
     Dates: start: 20201208, end: 20201214
  38. KEPPRA [Concomitant]
     Active Substance: LEVETIRACETAM
     Dosage: 500,MG,TWICE DAILY
     Route: 048
     Dates: start: 20201123, end: 20201129
  39. KEPPRA [Concomitant]
     Active Substance: LEVETIRACETAM
     Dosage: 1000,MG,TWICE DAILY
     Route: 048
     Dates: start: 20201129, end: 20201130
  40. KEPPRA [Concomitant]
     Active Substance: LEVETIRACETAM
     Dosage: 1000,MG,TWICE DAILY
     Route: 042
     Dates: start: 20201130, end: 20201208
  41. KEPPRA [Concomitant]
     Active Substance: LEVETIRACETAM
     Dosage: 1000,MG,TWICE DAILY
     Route: 048
     Dates: start: 20201208, end: 20201214
  42. KEPPRA [Concomitant]
     Active Substance: LEVETIRACETAM
     Dosage: 500,MG,DAILY
     Route: 048
     Dates: start: 20201209, end: 20201210
  43. MELATONIN [Concomitant]
     Active Substance: MELATONIN
     Dosage: 3,MG,AS NECESSARY
     Route: 048
     Dates: start: 20201123, end: 20201214
  44. MELATONIN [Concomitant]
     Active Substance: MELATONIN
     Dosage: 10,MG,DAILY
     Route: 048
     Dates: start: 20201210, end: 20201214
  45. MELATONIN [Concomitant]
     Active Substance: MELATONIN
     Dosage: 3-10,MG,AS NECESSARY
     Route: 048
     Dates: start: 20201124, end: 20201214
  46. MELATONIN [Concomitant]
     Active Substance: MELATONIN
     Dosage: 10,MG,DAILY
     Route: 048
     Dates: start: 20201210, end: 20201213
  47. POTASSIUM CHLORIDE\SODIUM CHLORIDE [Concomitant]
     Active Substance: POTASSIUM CHLORIDE\SODIUM CHLORIDE
     Dosage: 20,OTHER,CONTINUOUS
     Route: 042
     Dates: start: 20201123, end: 20201214
  48. IMODIUM [Concomitant]
     Active Substance: LOPERAMIDE HYDROCHLORIDE
     Dosage: 2,MG,AS NECESSARY
     Route: 048
     Dates: start: 20201123, end: 20201214
  49. IMODIUM [Concomitant]
     Active Substance: LOPERAMIDE HYDROCHLORIDE
     Dosage: 4,MG,AS NECESSARY
     Route: 048
     Dates: start: 20201123, end: 20201214
  50. ATIVAN [Concomitant]
     Active Substance: LORAZEPAM
     Dosage: 0.25-1,MG,AS NECESSARY
     Route: 042
     Dates: start: 20201123, end: 20201208
  51. ATIVAN [Concomitant]
     Active Substance: LORAZEPAM
     Dosage: 1,MG,AS NECESSARY
     Route: 048
     Dates: start: 20201123, end: 20201210
  52. ATIVAN [Concomitant]
     Active Substance: LORAZEPAM
     Dosage: 0.5,MG,ONCE
     Route: 042
     Dates: start: 20201201, end: 20201201
  53. ATIVAN [Concomitant]
     Active Substance: LORAZEPAM
     Dosage: 0.5,MG,TWICE DAILY
     Route: 042
     Dates: start: 20201202, end: 20201208
  54. ATIVAN [Concomitant]
     Active Substance: LORAZEPAM
     Dosage: 0.5,MG,AS NECESSARY
     Route: 048
     Dates: start: 20201123, end: 20201210
  55. MAGNESIUM SULFATE [Concomitant]
     Active Substance: MAGNESIUM SULFATE
     Dosage: 8,OTHER,AS NECESSARY
     Route: 042
     Dates: start: 20201123, end: 20201214
  56. MAGNESIUM SULFATE [Concomitant]
     Active Substance: MAGNESIUM SULFATE
     Dosage: 8,OTHER,AS NECESSARY
     Route: 042
     Dates: start: 20201127, end: 20201129
  57. ONDANSETRON [Concomitant]
     Active Substance: ONDANSETRON
     Dosage: 8,MG,AS NECESSARY
     Route: 042
     Dates: start: 20201123, end: 20201214
  58. ONDANSETRON [Concomitant]
     Active Substance: ONDANSETRON
     Dosage: 16,MG,DAILY
     Route: 042
     Dates: start: 20201124, end: 20201126
  59. NEUPOGEN [Concomitant]
     Active Substance: FILGRASTIM
     Dosage: 300,OTHER,DAILY
     Route: 058
     Dates: start: 20201125, end: 20201203
  60. NEUPOGEN [Concomitant]
     Active Substance: FILGRASTIM
     Dosage: 300,OTHER,DAILY
     Route: 058
     Dates: start: 20201209, end: 20201212
  61. NEUPOGEN [Concomitant]
     Active Substance: FILGRASTIM
     Dosage: 300,OTHER,DAILY
     Route: 058
     Dates: start: 20201214, end: 20201214
  62. NEUPOGEN [Concomitant]
     Active Substance: FILGRASTIM
     Dosage: 300,OTHER,ONCE
     Route: 058
     Dates: start: 20201222, end: 20201222
  63. ZOSYN [Concomitant]
     Active Substance: PIPERACILLIN SODIUM\TAZOBACTAM SODIUM
     Dosage: 3.375,G,ONCE
     Route: 042
     Dates: start: 20201127, end: 20201127
  64. ZOSYN [Concomitant]
     Active Substance: PIPERACILLIN SODIUM\TAZOBACTAM SODIUM
     Dosage: 3.375,G,THREE TIMES DAILY
     Route: 042
     Dates: start: 20201127, end: 20201204
  65. ZOSYN [Concomitant]
     Active Substance: PIPERACILLIN SODIUM\TAZOBACTAM SODIUM
     Dosage: 3.375,G,ONCE
     Route: 042
     Dates: start: 20220216, end: 20220216
  66. ACTEMRA [Concomitant]
     Active Substance: TOCILIZUMAB
     Dosage: 512.8,MG,ONCE
     Route: 042
     Dates: start: 20201127, end: 20201127
  67. ACTEMRA [Concomitant]
     Active Substance: TOCILIZUMAB
     Dosage: 521.6,MG,TWICE DAILY
     Route: 042
     Dates: start: 20201129, end: 20201129
  68. ACTEMRA [Concomitant]
     Active Substance: TOCILIZUMAB
     Dosage: 523.2,MG,ONCE
     Route: 042
     Dates: start: 20201129, end: 20201130
  69. DECADRON [Concomitant]
     Active Substance: DEXAMETHASONE
     Dosage: 10,MG,ONCE
     Route: 042
     Dates: start: 20201127, end: 20201127
  70. DECADRON [Concomitant]
     Active Substance: DEXAMETHASONE
     Dosage: 8,MG,ONCE
     Route: 042
     Dates: start: 20201128, end: 20201128
  71. DECADRON [Concomitant]
     Active Substance: DEXAMETHASONE
     Dosage: 10,MG,ONCE
     Route: 042
     Dates: start: 20201129, end: 20201129
  72. DECADRON [Concomitant]
     Active Substance: DEXAMETHASONE
     Dosage: 10,MG,FOUR TIMES DAILY
     Route: 042
     Dates: start: 20201129, end: 20201130
  73. DECADRON [Concomitant]
     Active Substance: DEXAMETHASONE
     Dosage: 10,MG,FOUR TIMES DAILY
     Route: 042
     Dates: start: 20201201, end: 20201201
  74. DECADRON [Concomitant]
     Active Substance: DEXAMETHASONE
     Dosage: 10,MG,FOUR TIMES DAILY
     Route: 042
     Dates: start: 20201203, end: 20201204
  75. DECADRON [Concomitant]
     Active Substance: DEXAMETHASONE
     Dosage: 10,MG,THREE TIMES DAILY
     Route: 042
     Dates: start: 20201204, end: 20201205
  76. DECADRON [Concomitant]
     Active Substance: DEXAMETHASONE
     Dosage: 10,MG,TWICE DAILY
     Route: 042
     Dates: start: 20201205, end: 20201206
  77. DECADRON [Concomitant]
     Active Substance: DEXAMETHASONE
     Dosage: 10,MG,DAILY
     Route: 042
     Dates: start: 20201206, end: 20201208
  78. DECADRON [Concomitant]
     Active Substance: DEXAMETHASONE
     Dosage: 10,MG,TWICE DAILY
     Route: 042
     Dates: start: 20201210, end: 20201213
  79. DECADRON [Concomitant]
     Active Substance: DEXAMETHASONE
     Dosage: 4,MG,THREE TIMES DAILY
     Route: 048
     Dates: start: 20201214, end: 20201214
  80. DIPHENHYDRAMINE [Concomitant]
     Active Substance: DIPHENHYDRAMINE
     Dosage: 25,MG,ONCE
     Route: 048
     Dates: start: 20201119, end: 20201119
  81. DIPHENHYDRAMINE [Concomitant]
     Active Substance: DIPHENHYDRAMINE
     Dosage: 12.5,MG,ONCE
     Route: 042
     Dates: start: 20201124, end: 20201124
  82. DIPHENHYDRAMINE [Concomitant]
     Active Substance: DIPHENHYDRAMINE
     Dosage: 25,MG,ONCE
     Route: 048
     Dates: start: 20201216, end: 20201216
  83. OXYGEN [Concomitant]
     Active Substance: OXYGEN
     Dosage: 1,L/MIN,AS NECESSARY
     Route: 045
     Dates: start: 20201130, end: 20201130
  84. VANCOMYCIN [Concomitant]
     Active Substance: VANCOMYCIN
     Dosage: 1,G,ONCE
     Route: 042
     Dates: start: 20220216, end: 20220216
  85. FILGRASTIM [Concomitant]
     Active Substance: FILGRASTIM
     Dosage: 300,OTHER,ONCE
     Route: 058
     Dates: start: 20220216, end: 20220216

REACTIONS (5)
  - Syncope [Recovered/Resolved]
  - Hyponatraemia [Recovered/Resolved]
  - Tremor [Recovered/Resolved]
  - Aphasia [Recovered/Resolved]
  - Anaemia [Recovered/Resolved]

NARRATIVE: CASE EVENT DATE: 20201129
